FAERS Safety Report 5070394-5 (Version None)
Quarter: 2006Q3

REPORT INFORMATION
  Report Type: 
  Country: None (occurrence: None)
  Receive Date: 20060802
  Receipt Date: 20060725
  Transmission Date: 20061208
  Serious: Yes (Life-Threatening)
  Sender: FDA-Public Use
  Company Number: E2020-00206-SPO-JP

PATIENT
  Age: 74 Year
  Sex: Female

DRUGS (6)
  1. ARICEPT [Suspect]
     Indication: DEMENTIA ALZHEIMER'S TYPE
     Dosage: SEE IMAGE, ORAL
     Route: 048
     Dates: start: 20040616, end: 20040629
  2. ARICEPT [Suspect]
     Indication: DEMENTIA ALZHEIMER'S TYPE
     Dosage: SEE IMAGE, ORAL
     Route: 048
     Dates: start: 20040630, end: 20060628
  3. NIFEDIPINE [Suspect]
     Indication: HYPERTENSION
     Dosage: 40 MG, 1 IN 1 D, ORAL
     Route: 048
     Dates: start: 20050513
  4. LIVALO (PITAVASTATIN) [Suspect]
     Indication: HYPERCHOLESTEROLAEMIA
     Dosage: 1 MG, 1 IN 1 D, ORAL
     Route: 048
     Dates: start: 20051003
  5. RISPERDAL [Concomitant]
  6. CALBLOCK (AZELNIDIPINE) [Concomitant]

REACTIONS (4)
  - EPILEPSY [None]
  - GRAND MAL CONVULSION [None]
  - SICK SINUS SYNDROME [None]
  - SYNCOPE [None]
